FAERS Safety Report 8502575-X (Version None)
Quarter: 2012Q3

REPORT INFORMATION
  Report Type: 
  Country: None (occurrence: None)
  Receive Date: 20120711
  Receipt Date: 20120702
  Transmission Date: 20120928
  Serious: Yes (Hospitalization)
  Sender: FDA-Public Use
  Company Number: US-ASTELLAS-2012US005907

PATIENT
  Sex: Female
  Weight: 99 kg

DRUGS (4)
  1. BLINDED ASP8597 [Suspect]
     Indication: RENAL TRANSPLANT
     Dosage: 800 UNK, TOTAL DOSE
     Route: 042
     Dates: start: 20120619, end: 20120619
  2. MYCOPHENOLATE MOFETIL [Concomitant]
     Indication: RENAL TRANSPLANT
     Dosage: 500 UNK, BID
     Route: 048
     Dates: start: 20120619, end: 20120702
  3. BETA BLOCKING AGENTS [Concomitant]
     Indication: ATRIAL FIBRILLATION
     Dosage: UNK
     Route: 065
  4. PROGRAF [Suspect]
     Indication: RENAL TRANSPLANT
     Dosage: 2 MG, BID
     Route: 048
     Dates: start: 20120621

REACTIONS (3)
  - OESOPHAGEAL ULCER [None]
  - GASTRITIS [None]
  - SMALL INTESTINAL OBSTRUCTION [None]
